FAERS Safety Report 6321125-X (Version None)
Quarter: 2009Q3

REPORT INFORMATION
  Report Type: 
  Country: None (occurrence: None)
  Receive Date: 20090822
  Receipt Date: 20090724
  Transmission Date: 20100115
  Serious: No
  Sender: FDA-Public Use
  Company Number: US-ABBOTT-06P-163-0394164-00

PATIENT
  Sex: Male
  Weight: 88.53 kg

DRUGS (11)
  1. NIASPAN [Suspect]
     Indication: BLOOD CHOLESTEROL INCREASED
     Route: 048
     Dates: start: 20050301, end: 20060210
  2. NIASPAN [Suspect]
     Indication: LOW DENSITY LIPOPROTEIN INCREASED
     Dates: end: 20080901
  3. NIASPAN [Suspect]
     Dates: start: 20080901
  4. AVAPRO [Concomitant]
     Indication: HYPERTENSION
     Route: 048
  5. HYDROCHLOROTHIAZIDE [Concomitant]
     Indication: DIURETIC THERAPY
  6. DOXAZOSIN [Concomitant]
     Indication: HYPERTENSION
  7. CHOLOX (UNCONFIRMED) [Concomitant]
     Indication: SUPPLEMENTATION THERAPY
  8. PRAVASTATIN [Concomitant]
     Indication: BLOOD CHOLESTEROL INCREASED
     Dates: end: 20081216
  9. PRAVASTATIN [Concomitant]
     Route: 048
  10. VITAMINS [Concomitant]
     Indication: DRUG USE FOR UNKNOWN INDICATION
  11. OMEPRAZOLE [Concomitant]
     Indication: GASTROOESOPHAGEAL REFLUX DISEASE

REACTIONS (3)
  - ARTHRALGIA [None]
  - MYALGIA [None]
  - PARAESTHESIA [None]
